FAERS Safety Report 9997358 (Version 1)
Quarter: 2014Q1

REPORT INFORMATION
  Report Type: Spontaneous
  Country: US (occurrence: None)
  Receive Date: 20140228
  Receipt Date: 20140228
  Transmission Date: 20141002
  Serious: Yes (Hospitalization)
  Sender: FDA-Public Use
  Company Number: US-JNJFOC-20130408094

PATIENT
  Age: 24 Month
  Sex: Male

DRUGS (1)
  1. MOTRIN [Suspect]
     Indication: PYREXIA
     Dosage: UNKNOWN  ??/??/???? ONGOING THERAPY DATES

REACTIONS (1)
  - Drug effect incomplete [None]
